FAERS Safety Report 8544827-3 (Version None)
Quarter: 2012Q3

REPORT INFORMATION
  Report Type: 
  Country: None (occurrence: None)
  Receive Date: 20120727
  Receipt Date: 20120719
  Transmission Date: 20120928
  Serious: Yes (Other)
  Sender: FDA-Public Use
  Company Number: AU-ROCHE-1090167

PATIENT
  Age: 48 Year
  Sex: Male
  Weight: 80 kg

DRUGS (4)
  1. ACETAMINOPHEN [Concomitant]
     Dates: start: 20110613
  2. VEMURAFENIB [Suspect]
     Indication: MALIGNANT MELANOMA
     Route: 048
  3. PANTOPRAZOLE SODIUM [Concomitant]
     Dates: start: 20111206
  4. VOLTAREN [Concomitant]
     Dates: start: 20110914

REACTIONS (1)
  - DYSPLASTIC NAEVUS [None]
